APPROVED DRUG PRODUCT: DILTIAZEM HYDROCHLORIDE
Active Ingredient: DILTIAZEM HYDROCHLORIDE
Strength: 5MG/ML
Dosage Form/Route: INJECTABLE;INJECTION
Application: A075086 | Product #001 | TE Code: AP
Applicant: RISING PHARMA HOLDINGS INC
Approved: Apr 9, 1998 | RLD: No | RS: No | Type: RX